FAERS Safety Report 8838096 (Version 1)
Quarter: 2012Q4

REPORT INFORMATION
  Report Type: Report from Study
  Country: CA (occurrence: CA)
  Receive Date: 20121012
  Receipt Date: 20121012
  Transmission Date: 20130627
  Serious: Yes (Hospitalization)
  Sender: FDA-Public Use
  Company Number: CA-ROCHE-1141412

PATIENT
  Age: 68 Year
  Sex: Female
  Weight: 83.99 kg

DRUGS (10)
  1. MABTHERA [Suspect]
     Indication: CHRONIC LYMPHOCYTIC LEUKAEMIA
     Route: 042
     Dates: start: 20120423, end: 20120828
  2. PAXIL [Concomitant]
  3. CIPRALEX [Concomitant]
  4. RANITIDINE [Concomitant]
  5. HYDROCHLOROTHIAZIDE [Concomitant]
  6. BISOPROLOL [Concomitant]
  7. CHLORTHALIDONE [Concomitant]
  8. LEVOTHYROXINE [Concomitant]
  9. RALOXIFENE [Concomitant]
  10. CANDESARTAN [Concomitant]

REACTIONS (2)
  - Haemoglobin decreased [Unknown]
  - Rectal haemorrhage [Recovered/Resolved]
